FAERS Safety Report 4306738-9 (Version None)
Quarter: 2004Q1

REPORT INFORMATION
  Report Type: 
  Country: None (occurrence: None)
  Receive Date: 20040225
  Receipt Date: 20031212
  Transmission Date: 20041129
  Serious: No
  Sender: FDA-Public Use
  Company Number: US-BRISTOL-MYERS SQUIBB COMPANY-12471686

PATIENT
  Age: 28 Year
  Sex: Female
  Weight: 69 kg

DRUGS (1)
  1. EXCEDRIN ES [Suspect]
     Indication: TOOTHACHE
     Route: 048
     Dates: start: 20031211, end: 20031212

REACTIONS (2)
  - MEDICATION ERROR [None]
  - NAUSEA [None]
